FAERS Safety Report 17933732 (Version 1)
Quarter: 2020Q2

REPORT INFORMATION
  Report Type: Spontaneous
  Country: US (occurrence: US)
  Receive Date: 20200623
  Receipt Date: 20200623
  Transmission Date: 20200714
  Serious: No
  Sender: FDA-Public Use
  Company Number: US-PERRIGO-20US002111

PATIENT
  Age: 50 Year
  Sex: Female
  Weight: 135.15 kg

DRUGS (1)
  1. MICONAZOLE NITRATE. [Suspect]
     Active Substance: MICONAZOLE NITRATE
     Indication: VULVOVAGINAL MYCOTIC INFECTION
     Dosage: 100 MG, TWICE WITHIN 24 HOURS
     Route: 067
     Dates: start: 20200204, end: 20200205

REACTIONS (2)
  - Inappropriate schedule of product administration [Recovered/Resolved]
  - Vulvovaginal pain [Not Recovered/Not Resolved]

NARRATIVE: CASE EVENT DATE: 20200204
